FAERS Safety Report 4782679-8 (Version None)
Quarter: 2005Q3

REPORT INFORMATION
  Report Type: 
  Country: None (occurrence: None)
  Receive Date: 20050929
  Receipt Date: 20050705
  Transmission Date: 20060218
  Serious: No
  Sender: FDA-Public Use
  Company Number: 409832

PATIENT
  Sex: Male

DRUGS (2)
  1. COREG [Suspect]
     Indication: DRUG USE FOR UNKNOWN INDICATION
     Dosage: 25MG TWICE PER DAY
     Route: 048
  2. COZAAR [Concomitant]

REACTIONS (5)
  - BLOOD PRESSURE INCREASED [None]
  - CARDIAC FLUTTER [None]
  - DIPLOPIA [None]
  - EXTRASYSTOLES [None]
  - TREMOR [None]
